FAERS Safety Report 6460507-2 (Version None)
Quarter: 2009Q4

REPORT INFORMATION
  Report Type: 
  Country: None (occurrence: None)
  Receive Date: 20091130
  Receipt Date: 20091119
  Transmission Date: 20100525
  Serious: Yes (Hospitalization, Other)
  Sender: FDA-Public Use
  Company Number: JP-JNJFOC-20090803619

PATIENT
  Sex: Female

DRUGS (6)
  1. CRAVIT [Suspect]
     Indication: DECREASED APPETITE
     Route: 048
     Dates: start: 20090714, end: 20090714
  2. DENOSUMAB [Suspect]
     Indication: OSTEOPOROSIS
     Route: 058
     Dates: start: 20080707
  3. PRIMPERAN TAB [Suspect]
     Indication: DECREASED APPETITE
     Route: 048
     Dates: start: 20090714, end: 20090714
  4. BIOFERMIN [Suspect]
     Indication: DECREASED APPETITE
     Route: 048
     Dates: start: 20090714, end: 20090714
  5. CALCICHEW D3 [Suspect]
     Indication: OSTEOPOROSIS
     Dosage: 2 DF
     Route: 048
     Dates: start: 20080613
  6. UNKNOWN MEDICATION [Suspect]
     Indication: GASTROENTERITIS
     Route: 042
     Dates: start: 20090714, end: 20090714

REACTIONS (11)
  - ANAEMIA [None]
  - ASPIRATION [None]
  - BLOOD CREATININE INCREASED [None]
  - GASTRIC ULCER [None]
  - GASTROINTESTINAL HAEMORRHAGE [None]
  - INTESTINAL OBSTRUCTION [None]
  - MUSCLE ATROPHY [None]
  - PNEUMONIA [None]
  - SEPSIS [None]
  - SUPERIOR MESENTERIC ARTERY SYNDROME [None]
  - TACHYCARDIA [None]
